FAERS Safety Report 25475401 (Version 1)
Quarter: 2025Q2

REPORT INFORMATION
  Report Type: Spontaneous
  Country: CN (occurrence: CN)
  Receive Date: 20250624
  Receipt Date: 20250624
  Transmission Date: 20250716
  Serious: Yes (Hospitalization, Disabling, Other)
  Sender: NOVARTIS
  Company Number: CN-002147023-NVSC2025CN098441

PATIENT
  Age: 24 Year
  Sex: Female
  Weight: 40 kg

DRUGS (3)
  1. TRILEPTAL [Suspect]
     Active Substance: OXCARBAZEPINE
     Indication: Intentional overdose
     Dosage: 50.000 DOSAGE FORM, QD
     Route: 048
     Dates: start: 20250614, end: 20250614
  2. VENLAFAXINE HYDROCHLORIDE [Suspect]
     Active Substance: VENLAFAXINE HYDROCHLORIDE
     Indication: Intentional overdose
     Dosage: 14.000 DOSAGE FORM, QD (SUSTAINED-RELEASE)
     Route: 048
     Dates: start: 20250614, end: 20250614
  3. SEROQUEL [Concomitant]
     Active Substance: QUETIAPINE FUMARATE
     Indication: Depression
     Dosage: 3.000 DOSAGE FORM, QD
     Route: 048
     Dates: start: 20250614, end: 20250614

REACTIONS (6)
  - Intentional overdose [Recovering/Resolving]
  - Hypokalaemia [Recovering/Resolving]
  - Hyponatraemia [Recovering/Resolving]
  - Somnolence [Recovering/Resolving]
  - Dizziness [Recovering/Resolving]
  - Asthenia [Recovering/Resolving]

NARRATIVE: CASE EVENT DATE: 20250614
